FAERS Safety Report 9372194 (Version 2)
Quarter: 2013Q3

REPORT INFORMATION
  Report Type: Spontaneous
  Country: US (occurrence: None)
  Receive Date: 20130619
  Receipt Date: 20130711
  Transmission Date: 20140515
  Serious: Yes (Disabling)
  Sender: FDA-Public Use
  Company Number: AEUSA201300207

PATIENT
  Age: 78 Year
  Sex: Male
  Weight: 108.86 kg

DRUGS (1)
  1. GAMUNEX-C [Suspect]
     Indication: NEUROPATHY PERIPHERAL
     Route: 042
     Dates: start: 201302, end: 201302

REACTIONS (4)
  - Local swelling [None]
  - Pain in extremity [None]
  - Dry skin [None]
  - Abasia [None]
